FAERS Safety Report 8171474-8 (Version None)
Quarter: 2012Q1

REPORT INFORMATION
  Report Type: 
  Country: None (occurrence: None)
  Receive Date: 20120228
  Receipt Date: 20120221
  Transmission Date: 20120608
  Serious: Yes (Hospitalization, Other)
  Sender: FDA-Public Use
  Company Number: US-CELGENEUS-163-21880-11123877

PATIENT
  Sex: Female
  Weight: 59.02 kg

DRUGS (18)
  1. REVLIMID [Suspect]
     Indication: MULTIPLE MYELOMA
     Dosage: 25 MILLIGRAM
     Route: 048
     Dates: start: 20110601
  2. MVD [Concomitant]
     Route: 065
  3. CHOLESTYRAMINE [Concomitant]
     Dosage: 1 PACKET
     Route: 065
  4. MIRTAZAPINE [Concomitant]
     Route: 065
  5. GABAPENTIN [Concomitant]
     Dosage: 300 MILLIGRAM
     Route: 065
  6. ATIVAN [Concomitant]
     Dosage: 1 MILLIGRAM
     Route: 065
  7. REVLIMID [Suspect]
     Dosage: 25 MILLIGRAM
     Route: 048
     Dates: start: 20110901
  8. REVLIMID [Suspect]
     Dosage: 25 MILLIGRAM
     Route: 048
     Dates: start: 20111001, end: 20111201
  9. REGLAN [Concomitant]
     Dosage: 10 MILLIGRAM
     Route: 065
  10. POTASSIUM CHLORIDE [Concomitant]
     Route: 065
  11. METHADONE HCL [Concomitant]
     Dosage: 3
     Route: 065
  12. DRONABINOL [Concomitant]
     Dosage: 10 MILLIGRAM
     Route: 065
  13. OMEPRAZOLE [Concomitant]
     Dosage: 20 MILLIGRAM
     Route: 065
  14. COMPAZINE [Concomitant]
     Route: 065
  15. REVLIMID [Suspect]
     Dosage: 25 MILLIGRAM
     Route: 048
     Dates: start: 20120201
  16. ZOFRAN [Concomitant]
     Dosage: 8 MILLIGRAM
     Route: 065
  17. MS04 [Concomitant]
     Dosage: 30 MILLIGRAM
     Route: 065
  18. XIFAXAN [Concomitant]
     Route: 065

REACTIONS (4)
  - INCONTINENCE [None]
  - CLOSTRIDIAL INFECTION [None]
  - DIARRHOEA [None]
  - PNEUMONIA [None]
